FAERS Safety Report 16227832 (Version 2)
Quarter: 2019Q2

REPORT INFORMATION
  Report Type: Spontaneous
  Country: US (occurrence: US)
  Receive Date: 20190423
  Receipt Date: 20190604
  Transmission Date: 20190711
  Serious: Yes (Hospitalization, Other)
  Sender: FDA-Public Use
  Company Number: US-PFIZER INC-2019166871

PATIENT
  Age: 80 Year
  Sex: Female
  Weight: 88.45 kg

DRUGS (2)
  1. LORBRENA [Suspect]
     Active Substance: LORLATINIB
     Dosage: 100 MG, 1X/DAY
     Route: 048
     Dates: start: 20190410, end: 20190410
  2. LORBRENA [Suspect]
     Active Substance: LORLATINIB
     Indication: LUNG ADENOCARCINOMA
     Dosage: 100 MG, 1X/DAY
     Route: 048
     Dates: start: 20190330, end: 20190408

REACTIONS (23)
  - Malaise [Recovering/Resolving]
  - Asthenia [Unknown]
  - Dysphagia [Unknown]
  - Oropharyngeal pain [Unknown]
  - Cough [Recovering/Resolving]
  - Epistaxis [Unknown]
  - Dizziness [Unknown]
  - Swelling [Unknown]
  - Paranasal sinus hypersecretion [Unknown]
  - Influenza like illness [Unknown]
  - Nausea [Unknown]
  - Nervousness [Unknown]
  - Sinus pain [Unknown]
  - Nasopharyngitis [Unknown]
  - Pharyngeal swelling [Unknown]
  - Dysphonia [Unknown]
  - Chest discomfort [Unknown]
  - Pyrexia [Unknown]
  - Pleuritic pain [Unknown]
  - Choking sensation [Unknown]
  - Viral infection [Unknown]
  - Chest pain [Unknown]
  - Dyspnoea [Unknown]

NARRATIVE: CASE EVENT DATE: 2019
